FAERS Safety Report 22331087 (Version 1)
Quarter: 2023Q2

REPORT INFORMATION
  Report Type: Spontaneous
  Country: US (occurrence: None)
  Receive Date: 20230515
  Receipt Date: 20230515
  Transmission Date: 20230721
  Serious: Yes (Disabling, Other)
  Sender: FDA-Public Use
  Company Number: None

PATIENT
  Age: 33 Year
  Sex: Female
  Weight: 71.1 kg

DRUGS (2)
  1. DAXXIFY [Suspect]
     Active Substance: DAXIBOTULINUMTOXIN A-LANM
  2. VITAMINS [Concomitant]
     Active Substance: VITAMINS

REACTIONS (5)
  - Eyelid ptosis [None]
  - Impaired driving ability [None]
  - Loss of personal independence in daily activities [None]
  - Impaired work ability [None]
  - Panic reaction [None]

NARRATIVE: CASE EVENT DATE: 20230506
